FAERS Safety Report 7350733-2 (Version None)
Quarter: 2011Q1

REPORT INFORMATION
  Report Type: 
  Country: None (occurrence: None)
  Receive Date: 20110314
  Receipt Date: 20110307
  Transmission Date: 20110831
  Serious: Yes (Hospitalization)
  Sender: FDA-Public Use
  Company Number: BR-PFIZER INC-2011036395

PATIENT
  Age: 82 Year
  Sex: Male

DRUGS (9)
  1. SELSUN [Concomitant]
     Dosage: UNK
     Dates: start: 20091126
  2. DIGOXIN [Concomitant]
     Dosage: UNK
     Dates: start: 20090801
  3. OMEPRAZOLE [Concomitant]
     Dosage: UNK
     Dates: start: 20090801
  4. BLINDED THERAPY [Suspect]
     Indication: THROMBOSIS PROPHYLAXIS
     Dosage: UNK MG, 1X/DAY
     Route: 048
     Dates: start: 20091027
  5. SELOZOK [Concomitant]
     Dosage: UNK
     Dates: start: 20091126
  6. APROZIDE [Suspect]
     Dosage: UNK
     Dates: start: 20090820
  7. SIMVASTATIN [Concomitant]
     Dosage: UNK
     Dates: start: 20090801
  8. FUROSEMIDE [Concomitant]
     Dosage: UNK
     Dates: start: 20090801
  9. ALDACTONE [Suspect]
     Dosage: 25 MG, 1X/DAY
     Route: 048
     Dates: start: 20101025

REACTIONS (2)
  - HYPOTENSION [None]
  - FALL [None]
